FAERS Safety Report 4877184-4 (Version None)
Quarter: 2005Q4

REPORT INFORMATION
  Report Type: 
  Country: None (occurrence: None)
  Receive Date: 20051206
  Receipt Date: 20050929
  Transmission Date: 20060501
  Serious: No
  Sender: FDA-Public Use
  Company Number: USA0509109580

PATIENT
  Sex: Female

DRUGS (3)
  1. CYMBALTA [Suspect]
     Indication: ANXIETY
     Dosage: 30 MG DAY
     Dates: start: 20050701, end: 20050923
  2. LIPITOR [Concomitant]
  3. ZYRTEC [Concomitant]

REACTIONS (8)
  - ABNORMAL DREAMS [None]
  - BACK PAIN [None]
  - CRYING [None]
  - IMPATIENCE [None]
  - IRRITABILITY [None]
  - NECK PAIN [None]
  - PARAESTHESIA [None]
  - SPEECH DISORDER [None]
